FAERS Safety Report 8060208-3 (Version None)
Quarter: 2012Q1

REPORT INFORMATION
  Report Type: 
  Country: None (occurrence: None)
  Receive Date: 20120120
  Receipt Date: 20110927
  Transmission Date: 20120608
  Serious: No
  Sender: FDA-Public Use
  Company Number: US-NOVEN-11US003335

PATIENT
  Sex: Female

DRUGS (1)
  1. FENTANYL [Suspect]
     Indication: BONE PAIN
     Dosage: 50 UG, Q72H
     Route: 062
     Dates: start: 20110101

REACTIONS (1)
  - DRUG WITHDRAWAL SYNDROME [None]
